FAERS Safety Report 9933492 (Version 2)
Quarter: 2014Q1

REPORT INFORMATION
  Report Type: Spontaneous
  Country: US (occurrence: US)
  Receive Date: 20140228
  Receipt Date: 20140228
  Transmission Date: 20141002
  Serious: No
  Sender: FDA-Public Use
  Company Number: US-ABBVIE-13P-163-1169136-00

PATIENT
  Age: 41 Year
  Sex: Male
  Weight: 140.29 kg

DRUGS (3)
  1. ANDROGEL [Suspect]
     Indication: BLOOD TESTOSTERONE DECREASED
     Dates: start: 201305, end: 201307
  2. ANDROGEL [Suspect]
     Dosage: 5 PUMP ACTUATIONS
     Dates: start: 201307
  3. LISINOPRIL HCTZ [Concomitant]
     Indication: HYPERTENSION

REACTIONS (2)
  - Dizziness [Not Recovered/Not Resolved]
  - Headache [Not Recovered/Not Resolved]
